FAERS Safety Report 24350463 (Version 1)
Quarter: 2024Q3

REPORT INFORMATION
  Report Type: Report from Study
  Country: US (occurrence: US)
  Receive Date: 20240923
  Receipt Date: 20240923
  Transmission Date: 20241016
  Serious: No
  Sender: ROCHE
  Company Number: US-ROCHE-3514419

PATIENT
  Age: 47 Year
  Sex: Female

DRUGS (18)
  1. HERCEPTIN [Suspect]
     Active Substance: TRASTUZUMAB
     Indication: Oestrogen receptor assay positive
     Dosage: DATE OF FIRST TREATMENT: 22/NOV/2023
     Route: 041
     Dates: start: 20231122
  2. HERCEPTIN [Suspect]
     Active Substance: TRASTUZUMAB
     Indication: Breast cancer female
  3. CARVEDILOL [Concomitant]
     Active Substance: CARVEDILOL
  4. EPINEPHRINE [Concomitant]
     Active Substance: EPINEPHRINE
     Dosage: 0.3 MG/0.3 ML
  5. FLUTICASONE [Concomitant]
     Active Substance: FLUTICASONE
     Dosage: 50 MCG/ACT
     Route: 045
  6. LIDOCAINE\PRILOCAINE [Concomitant]
     Active Substance: LIDOCAINE\PRILOCAINE
  7. LORAZEPAM [Concomitant]
     Active Substance: LORAZEPAM
  8. MUPIROCIN [Concomitant]
     Active Substance: MUPIROCIN
  9. OMEPRAZOLE [Concomitant]
     Active Substance: OMEPRAZOLE
  10. ONDANSETRON [Concomitant]
     Active Substance: ONDANSETRON
  11. OXYBUTYNIN [Concomitant]
     Active Substance: OXYBUTYNIN\OXYBUTYNIN CHLORIDE
  12. ABRAXANE [Concomitant]
     Active Substance: PACLITAXEL
     Route: 042
  13. INTRAROSA [Concomitant]
     Active Substance: PRASTERONE
  14. PREDNISONE [Concomitant]
     Active Substance: PREDNISONE
  15. PROCHLORPERAZINE [Concomitant]
     Active Substance: PROCHLORPERAZINE
  16. SERTRALINE HYDROCHLORIDE [Concomitant]
     Active Substance: SERTRALINE HYDROCHLORIDE
  17. SPIRONOLACTONE [Concomitant]
     Active Substance: SPIRONOLACTONE
  18. TOPIRAMATE [Concomitant]
     Active Substance: TOPIRAMATE

REACTIONS (7)
  - Carpal tunnel syndrome [Unknown]
  - Dysuria [Unknown]
  - Iron deficiency anaemia [Unknown]
  - Urinary incontinence [Unknown]
  - Insomnia [Unknown]
  - Obesity [Unknown]
  - Gastrooesophageal reflux disease [Unknown]
